FAERS Safety Report 8445310 (Version 6)
Quarter: 2013Q2

REPORT INFORMATION
  Report Type: Report from Study
  Country: DE (occurrence: DE)
  Receive Date: 20120307
  Receipt Date: 20130423
  Transmission Date: 20140414
  Serious: Yes (Hospitalization, Other)
  Sender: FDA-Public Use
  Company Number: DE-UCBSA-052678

PATIENT
  Sex: Male
  Weight: 85 kg

DRUGS (4)
  1. CERTOLIZUMAB PEGOL [Suspect]
     Indication: RHEUMATOID ARTHRITIS
     Route: 058
     Dates: start: 20100608, end: 201107
  2. PANTOPRAZOL [Concomitant]
     Indication: PROPHYLAXIS
     Route: 048
  3. RAMIPRIL [Concomitant]
     Indication: BLOOD PRESSURE INCREASED
     Route: 048
  4. PREDNISOLONE [Concomitant]
     Indication: POLYARTHRITIS
     Route: 048
     Dates: start: 1989

REACTIONS (1)
  - Autoimmune hepatitis [Recovered/Resolved]
